FAERS Safety Report 20292362 (Version 5)
Quarter: 2022Q2

REPORT INFORMATION
  Report Type: Spontaneous
  Country: CA (occurrence: CA)
  Receive Date: 20220104
  Receipt Date: 20220419
  Transmission Date: 20220721
  Serious: Yes (Other)
  Sender: FDA-Public Use
  Company Number: CA-PFIZER INC-2020472941

PATIENT
  Age: 36 Year
  Sex: Male
  Weight: 106 kg

DRUGS (9)
  1. RUXIENCE [Suspect]
     Active Substance: RITUXIMAB-PVVR
     Indication: Toxic epidermal necrolysis
     Dosage: 1 G EVERY 3 MONTHS X 4
     Route: 042
  2. RUXIENCE [Suspect]
     Active Substance: RITUXIMAB-PVVR
     Indication: Eye inflammation
     Dosage: 1000 MG (SINGLE DOSE Q 3 MONTHS X 4)
     Route: 042
     Dates: start: 20210211
  3. RUXIENCE [Suspect]
     Active Substance: RITUXIMAB-PVVR
     Dosage: 1000 MG (SINGLE DOSE Q 3 MONTHS X 4)
     Route: 042
     Dates: start: 20210212
  4. RUXIENCE [Suspect]
     Active Substance: RITUXIMAB-PVVR
     Dosage: 1000 MG (SINGLE DOSE Q 3 MONTHS X 4)
     Route: 042
     Dates: start: 20210513
  5. RUXIENCE [Suspect]
     Active Substance: RITUXIMAB-PVVR
     Dosage: 1000 MG (1 DOSE ONLY)
     Route: 042
     Dates: start: 20211028, end: 20211028
  6. RUXIENCE [Suspect]
     Active Substance: RITUXIMAB-PVVR
     Dosage: 1000 MG (1 DOSE ONLY)
     Route: 042
     Dates: start: 20220114, end: 20220114
  7. ACETAMINOPHEN [Concomitant]
     Active Substance: ACETAMINOPHEN
     Indication: Premedication
     Dosage: 1000 MG
     Dates: start: 20210513, end: 20210513
  8. DIPHENHYDRAMINE [Concomitant]
     Active Substance: DIPHENHYDRAMINE
     Indication: Premedication
     Dosage: 50 MG
     Dates: start: 20210513, end: 20210513
  9. HYDROCORTISONE [Concomitant]
     Active Substance: HYDROCORTISONE
     Indication: Premedication
     Dosage: 100 MG
     Dates: start: 20210513, end: 20210513

REACTIONS (11)
  - Blindness [Unknown]
  - Off label use [Unknown]
  - Intentional product use issue [Unknown]
  - Off label use [Unknown]
  - Inappropriate schedule of product administration [Unknown]
  - Heart rate decreased [Unknown]
  - Eye inflammation [Not Recovered/Not Resolved]
  - Pain [Unknown]
  - Eye disorder [Not Recovered/Not Resolved]
  - Blood immunoglobulin G decreased [Not Recovered/Not Resolved]
  - Red blood cell count increased [Not Recovered/Not Resolved]

NARRATIVE: CASE EVENT DATE: 20210513
